FAERS Safety Report 4766202-X (Version None)
Quarter: 2005Q3

REPORT INFORMATION
  Report Type: 
  Country: None (occurrence: None)
  Receive Date: 20050912
  Receipt Date: 20050519
  Transmission Date: 20060218
  Serious: Yes (Hospitalization, Disabling)
  Sender: FDA-Public Use
  Company Number: US-MERCK-0505USA02338

PATIENT
  Age: 69 Year
  Sex: Male
  Weight: 86 kg

DRUGS (3)
  1. VIOXX [Suspect]
     Indication: ARTHRITIS
     Route: 048
     Dates: start: 20021111
  2. VIOXX [Suspect]
     Route: 048
     Dates: start: 20021111
  3. PRAVACHOL [Concomitant]
     Indication: BLOOD CHOLESTEROL INCREASED
     Route: 065
     Dates: start: 20031101

REACTIONS (12)
  - CARDIAC FAILURE CONGESTIVE [None]
  - CORONARY ARTERY ATHEROSCLEROSIS [None]
  - DRUG INEFFECTIVE [None]
  - HYPERKALAEMIA [None]
  - MYOCARDIAL INFARCTION [None]
  - OEDEMA PERIPHERAL [None]
  - PLEURAL EFFUSION [None]
  - PNEUMONIA [None]
  - POSTOPERATIVE RESPIRATORY DISTRESS [None]
  - RENAL FAILURE ACUTE [None]
  - SCIATICA [None]
  - VENTRICULAR DYSFUNCTION [None]
